FAERS Safety Report 10204881 (Version 2)
Quarter: 2014Q2

REPORT INFORMATION
  Report Type: Spontaneous
  Country: IT (occurrence: IT)
  Receive Date: 20140529
  Receipt Date: 20140609
  Transmission Date: 20141212
  Serious: Yes (Life-Threatening, Other)
  Sender: FDA-Public Use
  Company Number: IT-JNJFOC-20140514098

PATIENT
  Age: 78 Year
  Sex: Female

DRUGS (3)
  1. HALDOL [Suspect]
     Indication: BIPOLAR DISORDER
     Route: 048
     Dates: start: 20140521, end: 20140521
  2. TAVOR [Suspect]
     Indication: BIPOLAR DISORDER
     Route: 048
     Dates: start: 20140521, end: 20140521
  3. ZYPREXA [Suspect]
     Indication: BIPOLAR DISORDER
     Route: 048
     Dates: start: 20140521, end: 20140521

REACTIONS (7)
  - Intentional overdose [Unknown]
  - Self injurious behaviour [Unknown]
  - Electrocardiogram QT prolonged [Unknown]
  - Loss of consciousness [Unknown]
  - Hypertension [Unknown]
  - Tachyarrhythmia [Unknown]
  - Drug abuse [Unknown]
